FAERS Safety Report 4697198-7 (Version None)
Quarter: 2005Q2

REPORT INFORMATION
  Report Type: 
  Country: None (occurrence: None)
  Receive Date: 20050621
  Receipt Date: 20050621
  Transmission Date: 20051028
  Serious: Yes (Other)
  Sender: FDA-Public Use
  Company Number: None

PATIENT
  Sex: Male
  Weight: 68.0396 kg

DRUGS (4)
  1. PROVENTIL-HFA [Suspect]
  2. NORPACE [Concomitant]
  3. CALAN [Concomitant]
  4. LEVOTHRO [Concomitant]

REACTIONS (2)
  - INSOMNIA [None]
  - TACHYCARDIA [None]
